FAERS Safety Report 11543212 (Version 1)
Quarter: 2015Q3

REPORT INFORMATION
  Report Type: Spontaneous
  Country: FR (occurrence: FR)
  Receive Date: 20150923
  Receipt Date: 20150923
  Transmission Date: 20151125
  Serious: Yes (Hospitalization)
  Sender: FDA-Public Use
  Company Number: FR-ENDO PHARMACEUTICALS INC.-2015-002942

PATIENT
  Age: 49 Year
  Sex: Male

DRUGS (4)
  1. FROVA [Suspect]
     Active Substance: FROVATRIPTAN SUCCINATE
     Indication: PRODUCT USED FOR UNKNOWN INDICATION
     Route: 048
  2. BACLOFEN TABLETS [Suspect]
     Active Substance: BACLOFEN
     Route: 065
     Dates: start: 201401
  3. BACLOFEN TABLETS [Suspect]
     Active Substance: BACLOFEN
     Route: 065
     Dates: start: 20130822
  4. BACLOFEN TABLETS [Suspect]
     Active Substance: BACLOFEN
     Indication: ALCOHOLISM
     Route: 065
     Dates: start: 201404

REACTIONS (1)
  - Cerebral venous thrombosis [Recovered/Resolved]

NARRATIVE: CASE EVENT DATE: 20140407
